FAERS Safety Report 4571641-6 (Version None)
Quarter: 2005Q1

REPORT INFORMATION
  Report Type: 
  Country: None (occurrence: None)
  Receive Date: 20050207
  Receipt Date: 20050127
  Transmission Date: 20050727
  Serious: Yes (Other)
  Sender: FDA-Public Use
  Company Number: JP-BRISTOL-MYERS SQUIBB COMPANY-12844767

PATIENT
  Sex: Male

DRUGS (3)
  1. BRIPLATIN [Suspect]
     Indication: TESTIS CANCER
     Route: 042
  2. BLEOMYCIN [Suspect]
     Indication: TESTIS CANCER
     Route: 042
  3. LASTET [Suspect]
     Indication: TESTIS CANCER
     Route: 042

REACTIONS (1)
  - THROMBOSIS [None]
